FAERS Safety Report 6264746-5 (Version None)
Quarter: 2009Q3

REPORT INFORMATION
  Report Type: 
  Country: None (occurrence: None)
  Receive Date: 20090710
  Receipt Date: 20090702
  Transmission Date: 20100115
  Serious: Yes (Hospitalization)
  Sender: FDA-Public Use
  Company Number: AU-BRISTOL-MYERS SQUIBB COMPANY-14695894

PATIENT
  Age: 74 Year
  Sex: Male

DRUGS (3)
  1. ERBITUX [Suspect]
     Indication: HEAD AND NECK CANCER
     Dates: start: 20090501
  2. RADIATION THERAPY [Suspect]
     Indication: HEAD AND NECK CANCER
  3. ASPIRIN [Concomitant]
     Dosage: USED FOR YEARS

REACTIONS (1)
  - THROMBOCYTOPENIA [None]
